FAERS Safety Report 10052542 (Version 2)
Quarter: 2014Q2

REPORT INFORMATION
  Report Type: Spontaneous
  Country: FR (occurrence: FR)
  Receive Date: 20140402
  Receipt Date: 20140612
  Transmission Date: 20141212
  Serious: Yes (Hospitalization)
  Sender: FDA-Public Use
  Company Number: FR-SA-2014SA036138

PATIENT
  Age: 76 Year
  Sex: Male

DRUGS (3)
  1. PLAVIX [Suspect]
     Indication: PRODUCT USED FOR UNKNOWN INDICATION
     Route: 048
     Dates: end: 20131205
  2. SIMVASTATIN [Concomitant]
     Indication: DYSLIPIDAEMIA
     Route: 048
  3. EFFEXOR - SLOW RELEASE [Concomitant]
     Indication: DEPRESSION
     Route: 048

REACTIONS (5)
  - Malaise [Recovered/Resolved]
  - Renal failure acute [Recovered/Resolved]
  - Hypotension [Recovered/Resolved]
  - Haemorrhagic anaemia [Recovered/Resolved]
  - Confusional state [Recovered/Resolved]
